FAERS Safety Report 8975327 (Version 1)
Quarter: 2012Q4

REPORT INFORMATION
  Report Type: 
  Country: JP (occurrence: JP)
  Receive Date: 20121220
  Receipt Date: 20121220
  Transmission Date: 20130627
  Serious: Yes (Other)
  Sender: FDA-Public Use
  Company Number: PHHY2012JP117589

PATIENT
  Age: 20 Year
  Sex: Male

DRUGS (1)
  1. NEORAL [Suspect]
     Indication: DERMATITIS ATOPIC
     Dosage: 100 mg, daily
     Route: 048
     Dates: start: 20121117

REACTIONS (1)
  - Hallucination, auditory [Unknown]
